FAERS Safety Report 16552422 (Version 1)
Quarter: 2019Q3

REPORT INFORMATION
  Report Type: Spontaneous
  Country: AU (occurrence: AU)
  Receive Date: 20190710
  Receipt Date: 20190710
  Transmission Date: 20191004
  Serious: Yes (Other)
  Sender: FDA-Public Use
  Company Number: AU-AMREGENT-20191432

PATIENT
  Age: 36 Year
  Sex: Female
  Weight: 72.3 kg

DRUGS (4)
  1. FERINJECT [Suspect]
     Active Substance: FERRIC CARBOXYMALTOSE
     Dosage: DILUTED IN 250ML OF NS(1000MG)
     Route: 041
     Dates: start: 20190528, end: 20190626
  2. EUTROXSIG [Concomitant]
     Active Substance: LEVOTHYROXINE SODIUM
     Dosage: 0.1 MG, 1 IN 1 D
     Route: 048
  3. HUMALOG [Concomitant]
     Active Substance: INSULIN LISPRO
     Dosage: 5U MORNING/5U LUNCH/10U SUPPER
     Route: 058
  4. TOUJEO [Concomitant]
     Active Substance: INSULIN GLARGINE
     Dosage: 12 IU, 1 IN 1 D
     Route: 058

REACTIONS (3)
  - Pyrexia [Recovered/Resolved]
  - Serum sickness [Unknown]
  - Chills [Recovered/Resolved]

NARRATIVE: CASE EVENT DATE: 2019
